FAERS Safety Report 9540268 (Version 1)
Quarter: 2013Q3

REPORT INFORMATION
  Report Type: Spontaneous
  Country: GB (occurrence: None)
  Receive Date: 20130917
  Receipt Date: 20130917
  Transmission Date: 20140515
  Serious: Yes (Hospitalization, Other)
  Sender: FDA-Public Use
  Company Number: CL-517-2013

PATIENT
  Age: 120 Day
  Sex: 0

DRUGS (1)
  1. ONDANSETRON [Suspect]
     Route: 064
     Dates: start: 20130301, end: 20130518

REACTIONS (1)
  - Intestinal obstruction [None]
